FAERS Safety Report 5765379-7 (Version None)
Quarter: 2008Q2

REPORT INFORMATION
  Report Type: 
  Country: None (occurrence: None)
  Receive Date: 20080611
  Receipt Date: 20080529
  Transmission Date: 20081010
  Serious: Yes (Other)
  Sender: FDA-Public Use
  Company Number: US-ELI_LILLY_AND_COMPANY-US200805006183

PATIENT
  Age: 25 Year
  Sex: Female

DRUGS (4)
  1. STRATTERA [Suspect]
     Indication: ATTENTION DEFICIT/HYPERACTIVITY DISORDER
     Dosage: 25 MG, DAILY (1/D)
  2. STRATTERA [Suspect]
     Dosage: 40 MG, DAILY (1/D)
  3. STRATTERA [Suspect]
     Dosage: 50 MG, DAILY (1/D)
  4. STRATTERA [Suspect]

REACTIONS (1)
  - ASTHENIA [None]
